FAERS Safety Report 24044292 (Version 2)
Quarter: 2024Q3

REPORT INFORMATION
  Report Type: Spontaneous
  Country: DE (occurrence: None)
  Receive Date: 20240703
  Receipt Date: 20240712
  Transmission Date: 20241016
  Serious: Yes (Other)
  Sender: ASTRAZENECA
  Company Number: 2024A146363

PATIENT
  Age: 82 Year
  Sex: Male

DRUGS (13)
  1. DAPAGLIFLOZIN [Suspect]
     Active Substance: DAPAGLIFLOZIN
     Indication: Diabetes mellitus
     Route: 048
     Dates: start: 20230701, end: 20240612
  2. PREDNISOLONE [Suspect]
     Active Substance: PREDNISOLONE
     Indication: Myalgia
     Dosage: 9 MG MORGENS- ALLE 4 WOCHEN REDUKTION UM 1 MG9.0MG UNKNOWN
  3. SITAGLIPTIN 1A PHARMA [Concomitant]
     Dosage: 50.0MG UNKNOWN
     Route: 048
  4. VALSARTAN [Concomitant]
     Active Substance: VALSARTAN
     Dosage: 160 MG 1/2-0-080.0MG UNKNOWN
     Route: 048
  5. PRAVASTATIN [Concomitant]
     Active Substance: PRAVASTATIN
     Route: 048
  6. METFORMIN HYDROCHLORIDE [Concomitant]
     Active Substance: METFORMIN HYDROCHLORIDE
     Dosage: 1000 MG 1/2-0-1/21000.0MG UNKNOWN
     Route: 048
  7. METOPROLOL TARTRATE [Concomitant]
     Active Substance: METOPROLOL TARTRATE
     Dosage: 200 MG 1/2-0-0
     Route: 048
  8. ASPIRIN [Concomitant]
     Active Substance: ASPIRIN
     Dosage: 100.0MG UNKNOWN
     Route: 048
  9. TORSEMIDE [Concomitant]
     Active Substance: TORSEMIDE
     Dosage: 5.0MG UNKNOWN
     Route: 048
  10. CHOLECALCIFEROL [Concomitant]
     Active Substance: CHOLECALCIFEROL
     Dosage: 0.03MG UNKNOWN
     Route: 048
  11. NALOXONE HYDROCHLORIDE\TILIDINE HYDROCHLORIDE [Concomitant]
     Active Substance: NALOXONE HYDROCHLORIDE\TILIDINE HYDROCHLORIDE
     Dosage: 44.1 MG/3.6 MG
     Route: 048
  12. PANTOPRAZOLE SODIUM [Concomitant]
     Active Substance: PANTOPRAZOLE SODIUM
     Dosage: 40.0MG UNKNOWN
     Route: 048
  13. EZETIMIBE/AMLODIPINE/LOSARTAN/ROSUVASTATIN [Concomitant]
     Dosage: 10.0MG UNKNOWN
     Route: 048

REACTIONS (2)
  - Phimosis [Not Recovered/Not Resolved]
  - Balanoposthitis [Not Recovered/Not Resolved]

NARRATIVE: CASE EVENT DATE: 20240612
